FAERS Safety Report 23237854 (Version 2)
Quarter: 2024Q1

REPORT INFORMATION
  Report Type: Spontaneous
  Country: CA (occurrence: CA)
  Receive Date: 20231128
  Receipt Date: 20240323
  Transmission Date: 20240410
  Serious: Yes (Other)
  Sender: FDA-Public Use
  Company Number: CA-CELLTRION INC.-2023CA022732

PATIENT

DRUGS (2)
  1. INFLECTRA [Suspect]
     Active Substance: INFLIXIMAB-DYYB
     Indication: Crohn^s disease
     Dosage: 5 MG/KG, HOSPITAL START. INDUCTION WEEK 6 THEN MAINTENANCE EVERY 8 WEEKS
     Route: 042
     Dates: start: 20230727
  2. INFLECTRA [Suspect]
     Active Substance: INFLIXIMAB-DYYB
     Dosage: 5 MG/KG, HOSPITAL START. INDUCTION WEEK 6 THEN MAINTENANCE EVERY 8 WEEKS
     Route: 042
     Dates: start: 20230919

REACTIONS (5)
  - Colorectal cancer [Not Recovered/Not Resolved]
  - Ostomy bag placement [Unknown]
  - Appendicectomy [Unknown]
  - Fatigue [Not Recovered/Not Resolved]
  - Off label use [Unknown]

NARRATIVE: CASE EVENT DATE: 20230801
